FAERS Safety Report 8218741-7 (Version None)
Quarter: 2012Q1

REPORT INFORMATION
  Report Type: 
  Country: None (occurrence: None)
  Receive Date: 20120306
  Receipt Date: 20111205
  Transmission Date: 20120608
  Serious: Yes (Life-Threatening, Hospitalization, Other)
  Sender: FDA-Public Use
  Company Number: US-007229

PATIENT
  Age: 67 Year
  Sex: Male
  Weight: 72 kg

DRUGS (15)
  1. ATORVASTATIN [Concomitant]
  2. HEPARIN [Concomitant]
  3. ASPIRIN [Concomitant]
  4. IOPAMIDOL [Suspect]
     Indication: ANGIOGRAM
     Dosage: 191ML INTRAVENOUS (NOT OTHERWISE SPECIFIED)
     Route: 042
     Dates: start: 20110822, end: 20110822
  5. IOPAMIDOL [Suspect]
     Indication: ACUTE MYOCARDIAL INFARCTION
     Dosage: 191ML INTRAVENOUS (NOT OTHERWISE SPECIFIED)
     Route: 042
     Dates: start: 20110822, end: 20110822
  6. CANGRELOR VS. CLOPIDOGREL VS. PLACEBO [Suspect]
     Indication: PERCUTANEOUS CORONARY INTERVENTION
     Dosage: REGIMEN #1, REGIMEN #2, REGIMEN #3
     Dates: start: 20110822, end: 20110822
  7. CANGRELOR VS. CLOPIDOGREL VS. PLACEBO [Suspect]
     Indication: PERCUTANEOUS CORONARY INTERVENTION
     Dosage: REGIMEN #1, REGIMEN #2, REGIMEN #3
     Dates: start: 20110822, end: 20110822
  8. CANGRELOR VS. CLOPIDOGREL VS. PLACEBO [Suspect]
     Indication: PERCUTANEOUS CORONARY INTERVENTION
     Dosage: REGIMEN #1, REGIMEN #2, REGIMEN #3
     Dates: start: 20110822, end: 20110822
  9. NITROGLYCERIN [Concomitant]
  10. EPTIFIBATIDE [Concomitant]
  11. FENTANYL [Suspect]
     Indication: ANALGESIC THERAPY
     Dosage: 50UG INTRAVENOUS (NOT OTHERWISE SPECIFIED), 50UG, 18UG
     Dates: start: 20110822, end: 20110822
  12. FENTANYL [Suspect]
     Indication: ANALGESIC THERAPY
     Dosage: 50UG INTRAVENOUS (NOT OTHERWISE SPECIFIED), 50UG, 18UG
     Dates: start: 20110822, end: 20110822
  13. FENTANYL [Suspect]
     Indication: ANALGESIC THERAPY
     Dosage: 50UG INTRAVENOUS (NOT OTHERWISE SPECIFIED), 50UG, 18UG
     Dates: start: 20110822, end: 20110822
  14. LISINOPRIL [Concomitant]
  15. CLOPIDOGREL [Concomitant]

REACTIONS (2)
  - CARDIAC ARREST [None]
  - HYPERSENSITIVITY [None]
